FAERS Safety Report 10091760 (Version 2)
Quarter: 2014Q2

REPORT INFORMATION
  Report Type: Spontaneous
  Country: US (occurrence: US)
  Receive Date: 20140421
  Receipt Date: 20140421
  Transmission Date: 20141212
  Serious: No
  Sender: FDA-Public Use
  Company Number: US-PURDUE-USA-2004-0013190

PATIENT
  Sex: Male
  Weight: 83.9 kg

DRUGS (6)
  1. OXYIR CAPSULES 5 MG [Suspect]
     Indication: BACK PAIN
  2. OXYCONTIN TABLETS [Concomitant]
     Indication: PAIN
     Route: 048
     Dates: start: 20011213
  3. TRAZODONE [Concomitant]
     Indication: PRODUCT USED FOR UNKNOWN INDICATION
     Route: 048
  4. ELAVIL                             /00002202/ [Concomitant]
     Indication: PRODUCT USED FOR UNKNOWN INDICATION
     Route: 048
  5. WELLBUTRIN [Concomitant]
     Indication: PRODUCT USED FOR UNKNOWN INDICATION
     Route: 048
  6. NEURONTIN [Concomitant]
     Indication: PRODUCT USED FOR UNKNOWN INDICATION
     Route: 048

REACTIONS (12)
  - Sexual dysfunction [Unknown]
  - Pain in extremity [Unknown]
  - Cough [Unknown]
  - Increased upper airway secretion [Unknown]
  - Dizziness [Unknown]
  - Dysuria [Unknown]
  - Paraesthesia [Unknown]
  - Wheezing [Unknown]
  - Depression [Unknown]
  - Mood swings [Unknown]
  - Dyspepsia [Unknown]
  - Blood testosterone decreased [Unknown]
